FAERS Safety Report 8508714 (Version 2)
Quarter: 2014Q2

REPORT INFORMATION
  Report Type: Spontaneous
  Country: US (occurrence: US)
  Receive Date: 20120412
  Receipt Date: 20140411
  Transmission Date: 20141212
  Serious: No
  Sender: FDA-Public Use
  Company Number: US-ASTRAZENECA-2011SE62170

PATIENT
  Age: 53 Year
  Sex: Female
  Weight: 96.2 kg

DRUGS (2)
  1. NEXIUM [Suspect]
     Indication: GASTROOESOPHAGEAL REFLUX DISEASE
     Route: 048
  2. NEXIUM [Suspect]
     Indication: GASTROOESOPHAGEAL REFLUX DISEASE
     Route: 048

REACTIONS (16)
  - Hiccups [Unknown]
  - Dyspepsia [Unknown]
  - Dyspepsia [Unknown]
  - Adverse event [Unknown]
  - Gingival disorder [Not Recovered/Not Resolved]
  - Dyspepsia [Unknown]
  - Fibromyalgia [Not Recovered/Not Resolved]
  - Eating disorder [Unknown]
  - Cardiac disorder [Unknown]
  - Blister [Unknown]
  - Psoriasis [Unknown]
  - Malaise [Unknown]
  - Vomiting [Unknown]
  - Eructation [Unknown]
  - Hyperhidrosis [Unknown]
  - Intentional product misuse [Unknown]
